FAERS Safety Report 14860990 (Version 1)
Quarter: 2018Q2

REPORT INFORMATION
  Report Type: Spontaneous
  Country: US (occurrence: US)
  Receive Date: 20180508
  Receipt Date: 20180508
  Transmission Date: 20180711
  Serious: Yes (Other)
  Sender: FDA-Public Use
  Company Number: US-AKORN PHARMACEUTICALS-2018AKN00564

PATIENT
  Sex: Male

DRUGS (1)
  1. MYORISAN [Suspect]
     Active Substance: ISOTRETINOIN
     Dosage: UNK, UNK

REACTIONS (10)
  - Irritability [Not Recovered/Not Resolved]
  - Social avoidant behaviour [Unknown]
  - Substance use disorder [Recovering/Resolving]
  - Depression [Not Recovered/Not Resolved]
  - Fatigue [Not Recovered/Not Resolved]
  - Anger [Not Recovered/Not Resolved]
  - Laceration [Unknown]
  - Unevaluable event [Unknown]
  - Anxiety [Not Recovered/Not Resolved]
  - Suicide attempt [Recovered/Resolved]
